FAERS Safety Report 12037061 (Version 1)
Quarter: 2016Q1

REPORT INFORMATION
  Report Type: Spontaneous
  Country: US (occurrence: None)
  Receive Date: 20160205
  Receipt Date: 20160205
  Transmission Date: 20160526
  Serious: No
  Sender: FDA-Public Use
  Company Number: None

PATIENT
  Age: 30 Year
  Sex: Female
  Weight: 68.04 kg

DRUGS (4)
  1. GREEN TEA TABLETS [Concomitant]
  2. ZOLOFT [Concomitant]
     Active Substance: SERTRALINE HYDROCHLORIDE
  3. APAP [Suspect]
     Active Substance: ACETAMINOPHEN
     Indication: HEADACHE
     Route: 048
     Dates: start: 20160126, end: 20160128
  4. BUSPAR [Concomitant]
     Active Substance: BUSPIRONE HYDROCHLORIDE

REACTIONS (8)
  - Diarrhoea [None]
  - Product colour issue [None]
  - Fatigue [None]
  - Weight decreased [None]
  - Vomiting [None]
  - Blood pressure increased [None]
  - Product contamination microbial [None]
  - Decreased appetite [None]

NARRATIVE: CASE EVENT DATE: 20160128
